FAERS Safety Report 24314975 (Version 1)
Quarter: 2024Q3

REPORT INFORMATION
  Report Type: Report from Study
  Country: US (occurrence: US)
  Receive Date: 20240913
  Receipt Date: 20240913
  Transmission Date: 20241017
  Serious: Yes (Hospitalization)
  Sender: ACCORD
  Company Number: US-Accord-445791

PATIENT
  Sex: Male
  Weight: 88 kg

DRUGS (3)
  1. CLOZAPINE [Suspect]
     Active Substance: CLOZAPINE
     Indication: Dementia
     Dosage: 12.5MG, EVERY MORNING AND 25MG EVERY AFTERNOON AT 3:30 PM
     Route: 048
  2. CARBIDOPA\LEVODOPA [Concomitant]
     Active Substance: CARBIDOPA\LEVODOPA
     Indication: Parkinson^s disease
  3. DONEPEZIL [Concomitant]
     Active Substance: DONEPEZIL\DONEPEZIL HYDROCHLORIDE
     Indication: Dementia

REACTIONS (3)
  - Urinary tract infection [Recovering/Resolving]
  - Fall [Unknown]
  - Off label use [Unknown]
